FAERS Safety Report 4304349-2 (Version None)
Quarter: 2004Q1

REPORT INFORMATION
  Report Type: 
  Country: None (occurrence: None)
  Receive Date: 20040224
  Receipt Date: 20040218
  Transmission Date: 20041129
  Serious: Yes (Disabling, Other)
  Sender: FDA-Public Use
  Company Number: 200314151BCC

PATIENT
  Age: 29 Year
  Sex: Male
  Weight: 72.5755 kg

DRUGS (2)
  1. ALEVE [Suspect]
     Indication: TOOTHACHE
     Dosage: 660 MG, PRN, ORAL
     Route: 048
     Dates: start: 20031105
  2. BEER [Concomitant]

REACTIONS (2)
  - MEDICATION ERROR [None]
  - NERVE INJURY [None]
